FAERS Safety Report 11716048 (Version 2)
Quarter: 2015Q4

REPORT INFORMATION
  Report Type: Spontaneous
  Country: US (occurrence: US)
  Receive Date: 20151109
  Receipt Date: 20151130
  Transmission Date: 20160304
  Serious: Yes (Hospitalization, Other)
  Sender: FDA-Public Use
  Company Number: US-CHARTWELL LIFE SCIENCE LLC-2015CHA00009

PATIENT
  Sex: Female
  Weight: 54.42 kg

DRUGS (2)
  1. DOXYCYCLINE HYCLATE. [Suspect]
     Active Substance: DOXYCYCLINE HYCLATE
     Dosage: 100 MG, 2X/DAY
     Route: 048
  2. DOXYCYCLINE HYCLATE. [Suspect]
     Active Substance: DOXYCYCLINE HYCLATE
     Indication: LYME DISEASE
     Dosage: 100 MG, 1X/DAY
     Route: 048

REACTIONS (30)
  - Dyspnoea [Recovered/Resolved]
  - Peripheral coldness [Unknown]
  - Inflammation [Not Recovered/Not Resolved]
  - Myalgia [Not Recovered/Not Resolved]
  - Hypoaesthesia [Recovering/Resolving]
  - Peripheral swelling [Unknown]
  - Cardiac disorder [Not Recovered/Not Resolved]
  - Paraesthesia [None]
  - Asthma [Not Recovered/Not Resolved]
  - Pruritus [Unknown]
  - Rash [Recovering/Resolving]
  - Sleep disorder [Unknown]
  - Superficial vein prominence [None]
  - Illusion [Recovered/Resolved]
  - Dizziness [Recovered/Resolved]
  - Limb discomfort [Unknown]
  - Blood immunoglobulin G increased [Not Recovered/Not Resolved]
  - Arthritis [Not Recovered/Not Resolved]
  - Skin discolouration [Unknown]
  - Reaction to drug excipients [Unknown]
  - Antinuclear antibody increased [Not Recovered/Not Resolved]
  - Arthralgia [Not Recovered/Not Resolved]
  - Vein disorder [Not Recovered/Not Resolved]
  - Skin burning sensation [Not Recovered/Not Resolved]
  - Blood test abnormal [Not Recovered/Not Resolved]
  - Chest discomfort [Not Recovered/Not Resolved]
  - Pain in jaw [Unknown]
  - Electrocardiogram T wave inversion [Unknown]
  - Serum sickness [Unknown]
  - Toxicity to various agents [None]

NARRATIVE: CASE EVENT DATE: 2015
